FAERS Safety Report 7629083-2 (Version None)
Quarter: 2011Q3

REPORT INFORMATION
  Report Type: 
  Country: None (occurrence: None)
  Receive Date: 20110722
  Receipt Date: 20110722
  Transmission Date: 20111222
  Serious: Yes (Life-Threatening, Hospitalization, Disabling)
  Sender: FDA-Public Use
  Company Number: None

PATIENT
  Sex: Male
  Weight: 77.3 kg

DRUGS (2)
  1. DAPTOMYCIN [Suspect]
     Indication: ARTHRITIS INFECTIVE
     Dosage: 550MG
     Route: 042
     Dates: start: 20100706, end: 20110725
  2. DAPTOMYCIN [Suspect]
     Indication: STAPHYLOCOCCAL INFECTION
     Dosage: 550MG
     Route: 042
     Dates: start: 20100706, end: 20110725

REACTIONS (7)
  - INTERSTITIAL LUNG DISEASE [None]
  - DISEASE COMPLICATION [None]
  - PYREXIA [None]
  - PULMONARY FIBROSIS [None]
  - GENERAL PHYSICAL HEALTH DETERIORATION [None]
  - FATIGUE [None]
  - DYSPNOEA [None]
